FAERS Safety Report 14570051 (Version 5)
Quarter: 2018Q2

REPORT INFORMATION
  Report Type: Report from Study
  Country: US (occurrence: US)
  Receive Date: 20180225
  Receipt Date: 20180517
  Transmission Date: 20180711
  Serious: Yes (Other)
  Sender: FDA-Public Use
  Company Number: PHEH2018US007291

PATIENT
  Sex: Female

DRUGS (1)
  1. PROMACTA [Suspect]
     Active Substance: ELTROMBOPAG OLAMINE
     Indication: PRODUCT USED FOR UNKNOWN INDICATION
     Dosage: UNK (HIGHER STRENGTH)
     Route: 065

REACTIONS (7)
  - Neck pain [Unknown]
  - Platelet count decreased [Unknown]
  - Hypersensitivity [Unknown]
  - Platelet count increased [Unknown]
  - Throat tightness [Unknown]
  - Drug hypersensitivity [Unknown]
  - Pharyngeal oedema [Unknown]
